FAERS Safety Report 8886596 (Version 4)
Quarter: 2013Q2

REPORT INFORMATION
  Report Type: Report from Study
  Country: US (occurrence: US)
  Receive Date: 20121105
  Receipt Date: 20130617
  Transmission Date: 20140414
  Serious: Yes (Hospitalization)
  Sender: FDA-Public Use
  Company Number: PHEH2012US014998

PATIENT
  Age: 63 Year
  Sex: Female

DRUGS (4)
  1. GLEEVEC [Suspect]
     Indication: CHRONIC MYELOID LEUKAEMIA
     Dosage: 400 MG, QD
     Route: 048
     Dates: start: 20120719
  2. GLEEVEC [Suspect]
     Dosage: 400 MG, QD
     Route: 048
     Dates: start: 20120726
  3. GLEEVEC [Suspect]
     Dosage: 400 MG, QD
     Route: 048
     Dates: start: 201207
  4. GLEEVEC [Suspect]
     Dosage: 400 MG,DAILY
     Route: 048

REACTIONS (8)
  - Ovarian cancer [Unknown]
  - Second primary malignancy [Unknown]
  - Weight decreased [Unknown]
  - Nausea [Unknown]
  - Vomiting [Unknown]
  - Malaise [Unknown]
  - Nasopharyngitis [Unknown]
  - Hypersensitivity [Unknown]
